FAERS Safety Report 17363169 (Version 1)
Quarter: 2020Q1

REPORT INFORMATION
  Report Type: Spontaneous
  Country: US (occurrence: US)
  Receive Date: 20200203
  Receipt Date: 20200203
  Transmission Date: 20200409
  Serious: Yes (Other)
  Sender: FDA-Public Use
  Company Number: US-009507513-2001USA010342

PATIENT
  Age: 22 Year
  Sex: Female
  Weight: 64.85 kg

DRUGS (1)
  1. NEXPLANON [Suspect]
     Active Substance: ETONOGESTREL
     Dosage: 1 IMPLANT ROD EVERY 3 YEARS, IN HER LEFT ARM
     Route: 059
     Dates: start: 20160216, end: 20200128

REACTIONS (6)
  - Device breakage [Recovered/Resolved]
  - Metrorrhagia [Unknown]
  - Incorrect product administration duration [Unknown]
  - Complication of device removal [Recovered/Resolved]
  - Product quality issue [Unknown]
  - Device dislocation [Recovered/Resolved]

NARRATIVE: CASE EVENT DATE: 20190217
